FAERS Safety Report 11829157 (Version 1)
Quarter: 2015Q4

REPORT INFORMATION
  Report Type: Spontaneous
  Country: US (occurrence: US)
  Receive Date: 20151211
  Receipt Date: 20151211
  Transmission Date: 20160305
  Serious: Yes (Other)
  Sender: FDA-Public Use
  Company Number: US-PFIZER INC-2015263461

PATIENT
  Age: 41 Year
  Sex: Female
  Weight: 100 kg

DRUGS (33)
  1. LUPRON DEPOT-PED [Suspect]
     Active Substance: LEUPROLIDE ACETATE
     Indication: BREAST CANCER METASTATIC
     Dosage: 7.5 MG, 1X/DAY (MONTHLY)
     Route: 030
     Dates: start: 20150116
  2. CEPHALEXIN HCL [Concomitant]
     Active Substance: CEPHALEXIN HYDROCHLORIDE
     Dosage: UNK
     Dates: start: 20150731
  3. FASLODEX [Concomitant]
     Active Substance: FULVESTRANT
  4. PROCET [Concomitant]
     Active Substance: ACETAMINOPHEN\HYDROCODONE BITARTRATE
     Indication: PAIN
     Dosage: 10-325 MG, AS NEEDED (1 TABLET, 1 IN 6 HR)
     Route: 048
  5. DRONABINOL. [Concomitant]
     Active Substance: DRONABINOL
     Dosage: 1 MG, AS NEEDED (1 TABLET, 1 IN 6 HR)
  6. SIMVASTATIN. [Concomitant]
     Active Substance: SIMVASTATIN
     Dosage: UNK
     Dates: start: 20150108
  7. CARISOPRODOL. [Concomitant]
     Active Substance: CARISOPRODOL
     Dosage: 350 MG, UNK (4 TABLET (2 TABLET, 2 IN 1 D)
     Route: 048
  8. FUROSEMIDE. [Concomitant]
     Active Substance: FUROSEMIDE
     Dosage: UNK
     Dates: start: 20150731
  9. ENALAPRIL MALEATE. [Concomitant]
     Active Substance: ENALAPRIL MALEATE
     Dosage: UNK
     Dates: start: 20150306
  10. IBUPROFEN. [Concomitant]
     Active Substance: IBUPROFEN
     Dosage: 800 MG, UNK
     Route: 048
  11. IBUPROFEN. [Concomitant]
     Active Substance: IBUPROFEN
     Dosage: UNK
     Dates: start: 20141229
  12. ZOLPIDEM TARTRATE. [Concomitant]
     Active Substance: ZOLPIDEM TARTRATE
     Dosage: 10 MG, AS NEEDED( AT BEDTIME AS NEEDED (1 TABLET, 1 IN 1 D)
     Route: 048
  13. SPIRONOLACTONE. [Suspect]
     Active Substance: SPIRONOLACTONE
     Indication: OEDEMA PERIPHERAL
     Dosage: 50 MG, 2X/DAY
     Route: 048
     Dates: start: 20150416
  14. HYDROCODONE BITARTRATE AND ACETAMINOPHEN [Concomitant]
     Active Substance: ACETAMINOPHEN\HYDROCODONE BITARTRATE
     Dosage: UNK
  15. DRONABINOL. [Concomitant]
     Active Substance: DRONABINOL
     Dosage: UNK
     Dates: start: 20150323
  16. FUROSEMIDE. [Concomitant]
     Active Substance: FUROSEMIDE
     Dosage: 20 MG, AS NEEDED (1 TABLET,1 IN 1 D)
     Route: 048
  17. AMLODIPINE BESYLATE. [Concomitant]
     Active Substance: AMLODIPINE BESYLATE
     Dosage: 10 MG, UNK
     Route: 048
  18. BUPROPION HYDROCHLORIDE APOTEX [Concomitant]
     Dosage: 2X/DAY ((1 I N 12 HR)
     Route: 048
  19. MORPHINE SULFATE. [Concomitant]
     Active Substance: MORPHINE SULFATE
     Dosage: 100 MG, 2X/DAY(1 TABLET, 1 IN 12 HR)
  20. NAVELBINE [Suspect]
     Active Substance: VINORELBINE TARTRATE
     Indication: BREAST CANCER METASTATIC
     Dosage: UNK, WEEKLY X 12 WEEKS
     Route: 042
     Dates: start: 20150408, end: 201507
  21. DICYCLOMINE HYDROCHLORIDE. [Concomitant]
     Active Substance: DICYCLOMINE HYDROCHLORIDE
     Dosage: UNK
  22. MORPHINE SULFATE. [Concomitant]
     Active Substance: MORPHINE SULFATE
     Dosage: UNK
     Dates: start: 20150112
  23. CALCIUM [Concomitant]
     Active Substance: CALCIUM
     Indication: MINERAL SUPPLEMENTATION
     Dosage: UNK
  24. LORAZEPAM. [Concomitant]
     Active Substance: LORAZEPAM
     Indication: ANXIETY
     Dosage: 1 MG, AS NEEDED (4 TO 6 HOURS AS NEEDED (1 TABLET)
     Route: 048
  25. CEPHALEXIN HCL [Concomitant]
     Active Substance: CEPHALEXIN HYDROCHLORIDE
     Dosage: 500 MG, 4X/DAY (4 CAPSULE (1 CAPSULE, 4 IN 1 D)
     Route: 048
  26. BUPROPION HYDROCHLORIDE APOTEX [Concomitant]
     Dosage: UNK
     Dates: start: 20141223
  27. CIMETIDINE [Concomitant]
     Active Substance: CIMETIDINE
     Dosage: 400 MG, UNK
     Route: 048
     Dates: start: 20140814
  28. CLINDAMYCIN HYDROCHLORIDE. [Concomitant]
     Active Substance: CLINDAMYCIN HYDROCHLORIDE
     Dosage: 300 MG, UNK
     Route: 048
     Dates: start: 20150218
  29. ZOLPIDEM TARTRATE. [Concomitant]
     Active Substance: ZOLPIDEM TARTRATE
     Indication: INSOMNIA
     Dosage: UNK
     Dates: start: 20150707
  30. CARISOPRODOL. [Concomitant]
     Active Substance: CARISOPRODOL
     Indication: BACK PAIN
     Dosage: UNK
     Dates: start: 20150416
  31. AMLODIPINE BESYLATE. [Concomitant]
     Active Substance: AMLODIPINE BESYLATE
     Dosage: UNK
     Dates: start: 20150216
  32. DICYCLOMINE HYDROCHLORIDE. [Concomitant]
     Active Substance: DICYCLOMINE HYDROCHLORIDE
     Indication: DYSPEPSIA
     Dosage: 20 MG, AS NEEDED (EVERY 4 TO G HOURS AS NEEDED (1 TABLET)
     Route: 048
     Dates: start: 20150223
  33. ENALAPRIL MALEATE. [Concomitant]
     Active Substance: ENALAPRIL MALEATE
     Dosage: 10 MG, UNK
     Route: 048

REACTIONS (35)
  - Hypocalcaemia [Unknown]
  - Weight increased [Unknown]
  - Lacrimation increased [Unknown]
  - Palpitations [Unknown]
  - Dry mouth [Unknown]
  - Pruritus [Unknown]
  - Headache [Unknown]
  - Asthenia [Unknown]
  - Dizziness [Unknown]
  - Dysgeusia [Unknown]
  - Arthralgia [Unknown]
  - Rash [Unknown]
  - Paraesthesia [Unknown]
  - Breast cancer metastatic [Unknown]
  - Loss of libido [Unknown]
  - Dry skin [Unknown]
  - Affect lability [Unknown]
  - Initial insomnia [Unknown]
  - Myalgia [Unknown]
  - Disturbance in attention [Unknown]
  - Vitamin D deficiency [Unknown]
  - Diabetes mellitus [Unknown]
  - Disease progression [Unknown]
  - Nausea [Unknown]
  - Palmar-plantar erythrodysaesthesia syndrome [Unknown]
  - Gastrooesophageal reflux disease [Unknown]
  - Reflux gastritis [Unknown]
  - Amnesia [Unknown]
  - Hot flush [Unknown]
  - Hyperlipidaemia [Unknown]
  - Micturition urgency [Unknown]
  - Hypoaesthesia [Unknown]
  - Vulvovaginal dryness [Unknown]
  - Oedema peripheral [Unknown]
  - Hypertension [Unknown]

NARRATIVE: CASE EVENT DATE: 2015
